FAERS Safety Report 7768013-X (Version None)
Quarter: 2011Q3

REPORT INFORMATION
  Report Type: 
  Country: None (occurrence: None)
  Receive Date: 20110922
  Receipt Date: 20101206
  Transmission Date: 20111222
  Serious: No
  Sender: FDA-Public Use
  Company Number: US-ASTRAZENECA-2010SE57832

PATIENT
  Sex: Male
  Weight: 75.7 kg

DRUGS (1)
  1. SEROQUEL XR [Suspect]
     Indication: BIPOLAR DISORDER
     Route: 048
     Dates: start: 20080101

REACTIONS (4)
  - ABDOMINAL DISCOMFORT [None]
  - DEPRESSED MOOD [None]
  - SOCIAL FEAR [None]
  - DRUG DOSE OMISSION [None]
